FAERS Safety Report 16453889 (Version 4)
Quarter: 2019Q3

REPORT INFORMATION
  Report Type: Spontaneous
  Country: DK (occurrence: DK)
  Receive Date: 20190619
  Receipt Date: 20190813
  Transmission Date: 20191004
  Serious: Yes (Hospitalization, Other)
  Sender: FDA-Public Use
  Company Number: PHHY2019DK138251

PATIENT
  Age: 32 Year
  Sex: Male

DRUGS (3)
  1. PARACETAMOL [Suspect]
     Active Substance: ACETAMINOPHEN
     Indication: SPINAL OPERATION
     Dosage: 8 G, QD
     Route: 065
  2. PARACETAMOL [Suspect]
     Active Substance: ACETAMINOPHEN
     Dosage: 2000 MG, QID
     Route: 065
  3. PARACETAMOL [Suspect]
     Active Substance: ACETAMINOPHEN
     Dosage: 1000 MG, QID
     Route: 065

REACTIONS (5)
  - Hepatotoxicity [Recovered/Resolved]
  - Accidental overdose [Recovered/Resolved]
  - Alanine aminotransferase increased [Recovered/Resolved]
  - Product prescribing error [Unknown]
  - Transcription medication error [Recovered/Resolved]
